FAERS Safety Report 20625272 (Version 2)
Quarter: 2022Q2

REPORT INFORMATION
  Report Type: Spontaneous
  Country: JP (occurrence: JP)
  Receive Date: 20220323
  Receipt Date: 20220406
  Transmission Date: 20220721
  Serious: Yes (Hospitalization)
  Sender: FDA-Public Use
  Company Number: JP-JNJFOC-20220347574

PATIENT
  Age: 7 Decade
  Sex: Male

DRUGS (1)
  1. ONEDURO [Suspect]
     Active Substance: FENTANYL
     Indication: Pain
     Dosage: 50MCG/HR
     Route: 062

REACTIONS (1)
  - Pneumonia [Recovering/Resolving]

NARRATIVE: CASE EVENT DATE: 20220311
